FAERS Safety Report 22636649 (Version 1)
Quarter: 2023Q2

REPORT INFORMATION
  Report Type: Spontaneous
  Country: PL (occurrence: PL)
  Receive Date: 20230623
  Receipt Date: 20230623
  Transmission Date: 20230722
  Serious: Yes (Other)
  Sender: FDA-Public Use
  Company Number: PL-002147023-NVSC2023PL138730

PATIENT
  Age: 48 Year
  Sex: Male

DRUGS (10)
  1. DASATINIB [Suspect]
     Active Substance: DASATINIB
     Indication: Chronic myeloid leukaemia
     Dosage: 100 MG
     Dates: start: 201912
  2. NILOTINIB [Suspect]
     Active Substance: NILOTINIB
     Indication: Chronic myeloid leukaemia
     Dosage: 400 MG, BID
     Dates: start: 201903
  3. BOSUTINIB [Suspect]
     Active Substance: BOSUTINIB
     Indication: Chronic myeloid leukaemia
     Dosage: 500 MG
     Dates: start: 2020
  4. PONATINIB [Suspect]
     Active Substance: PONATINIB
     Indication: Chronic myeloid leukaemia
     Dosage: 30 MG
     Dates: start: 2021
  5. PONATINIB [Suspect]
     Active Substance: PONATINIB
     Dosage: 15 MG
     Dates: start: 2021
  6. PONATINIB [Suspect]
     Active Substance: PONATINIB
     Dosage: 45 MG
     Dates: start: 2022
  7. PONATINIB [Suspect]
     Active Substance: PONATINIB
     Dosage: 15 MG, Q48H
     Dates: start: 2022
  8. ASCIMINIB [Suspect]
     Active Substance: ASCIMINIB
     Indication: Chronic myeloid leukaemia
     Dosage: 40 MG, BID
     Dates: start: 2023
  9. IMATINIB [Suspect]
     Active Substance: IMATINIB
     Indication: Chronic myeloid leukaemia
     Dosage: 400 MG
     Dates: start: 201810
  10. IMATINIB [Suspect]
     Active Substance: IMATINIB
     Dosage: 600 MG
     Dates: start: 201902

REACTIONS (14)
  - Haematocrit decreased [Unknown]
  - Mean cell haemoglobin concentration increased [Unknown]
  - Weight decreased [Unknown]
  - Splenomegaly [Unknown]
  - Drug intolerance [Unknown]
  - Peripheral ischaemia [Unknown]
  - White blood cell count decreased [Unknown]
  - Cytogenetic analysis abnormal [Unknown]
  - Abdominal pain lower [Unknown]
  - Hepatomegaly [Unknown]
  - Asthenia [Unknown]
  - Haemoglobin decreased [Unknown]
  - Red blood cell count decreased [Unknown]
  - Mean cell volume decreased [Unknown]

NARRATIVE: CASE EVENT DATE: 20220101
